FAERS Safety Report 9422777 (Version 1)
Quarter: 2013Q3

REPORT INFORMATION
  Report Type: Spontaneous
  Country: US (occurrence: None)
  Receive Date: 20130724
  Receipt Date: 20130724
  Transmission Date: 20140515
  Serious: Yes (Hospitalization)
  Sender: FDA-Public Use
  Company Number: IMP_06753_2013

PATIENT
  Age: 56 Year
  Sex: Female

DRUGS (1)
  1. METFORMIN [Suspect]
     Indication: PRODUCT USED FOR UNKNOWN INDICATION

REACTIONS (13)
  - Flank pain [None]
  - Dyspnoea [None]
  - Tachycardia [None]
  - Lactic acidosis [None]
  - White blood cell count increased [None]
  - Blood glucose increased [None]
  - Pulseless electrical activity [None]
  - Cardiac arrest [None]
  - Septic shock [None]
  - Renal failure acute [None]
  - Pyelonephritis [None]
  - Haemodialysis [None]
  - Drug level increased [None]
